FAERS Safety Report 12974424 (Version 1)
Quarter: 2016Q4

REPORT INFORMATION
  Report Type: Spontaneous
  Country: US (occurrence: US)
  Receive Date: 20161125
  Receipt Date: 20161125
  Transmission Date: 20170207
  Serious: No
  Sender: FDA-Public Use
  Company Number: US-TEVA-709926ACC

PATIENT
  Sex: Female
  Weight: 56.3 kg

DRUGS (2)
  1. PARAGARD T 380A [Suspect]
     Active Substance: COPPER
     Indication: CONTRACEPTION
     Dates: start: 201603
  2. PROAIR INHALER [Concomitant]
     Indication: ASTHMA

REACTIONS (2)
  - Menorrhagia [Unknown]
  - Polymenorrhoea [Unknown]
